FAERS Safety Report 8507365-X (Version None)
Quarter: 2012Q3

REPORT INFORMATION
  Report Type: 
  Country: None (occurrence: None)
  Receive Date: 20120712
  Receipt Date: 20120629
  Transmission Date: 20120928
  Serious: Yes (Other)
  Sender: FDA-Public Use
  Company Number: CHPA2012US014753

PATIENT
  Sex: Female

DRUGS (1)
  1. HABITROL [Suspect]
     Indication: SMOKING CESSATION THERAPY
     Dosage: 21 MG, ONCE/SINGLE
     Route: 062

REACTIONS (5)
  - SCREAMING [None]
  - HALLUCINATION, VISUAL [None]
  - MOOD ALTERED [None]
  - ABNORMAL BEHAVIOUR [None]
  - MALAISE [None]
